FAERS Safety Report 17910239 (Version 2)
Quarter: 2020Q3

REPORT INFORMATION
  Report Type: Spontaneous
  Country: US (occurrence: US)
  Receive Date: 20200618
  Receipt Date: 20200704
  Transmission Date: 20201103
  Serious: Yes (Hospitalization)
  Sender: FDA-Public Use
  Company Number: US-TEVA-2020-US-1510474

PATIENT
  Age: 57 Year
  Sex: Male

DRUGS (1)
  1. ROPINIROLE. [Suspect]
     Active Substance: ROPINIROLE
     Indication: RESTLESS ARM SYNDROME
     Dosage: .25 MILLIGRAM DAILY;
     Route: 048

REACTIONS (3)
  - Cerebrovascular accident [Unknown]
  - Hepatotoxicity [Recovering/Resolving]
  - Hepatic steatosis [Unknown]
